FAERS Safety Report 6058359-8 (Version None)
Quarter: 2009Q1

REPORT INFORMATION
  Report Type: 
  Country: None (occurrence: None)
  Receive Date: 20090130
  Receipt Date: 20090119
  Transmission Date: 20090719
  Serious: Yes (Hospitalization, Other)
  Sender: FDA-Public Use
  Company Number: DE-BRISTOL-MYERS SQUIBB COMPANY-14452825

PATIENT
  Age: 51 Year
  Sex: Female
  Weight: 60 kg

DRUGS (4)
  1. ABILIFY [Suspect]
     Indication: DEPRESSION
     Dosage: INITIAL DOSE 5MG
     Route: 048
     Dates: start: 20081127, end: 20081221
  2. JATROSOM N [Interacting]
     Indication: DEPRESSION
     Dosage: INITIAL DOSE 5MG
     Route: 048
     Dates: start: 20081208, end: 20081221
  3. LAMOTRIGINE [Concomitant]
     Indication: MOOD SWINGS
     Route: 048
     Dates: end: 20081221
  4. MELPERONE HCL [Concomitant]
     Indication: SLEEP DISORDER
     Route: 048
     Dates: start: 20081204, end: 20081221

REACTIONS (2)
  - DRUG INTERACTION [None]
  - SEROTONIN SYNDROME [None]
